FAERS Safety Report 17684036 (Version 1)
Quarter: 2020Q2

REPORT INFORMATION
  Report Type: Spontaneous
  Country: FR (occurrence: FR)
  Receive Date: 20200420
  Receipt Date: 20200420
  Transmission Date: 20200714
  Serious: Yes (Hospitalization)
  Sender: FDA-Public Use
  Company Number: FR-MYLANLABS-2020M1038319

PATIENT
  Age: 66 Year
  Sex: Female
  Weight: 85 kg

DRUGS (14)
  1. PHOSPHONEUROS [Concomitant]
     Active Substance: CALCIUM PHOSPHATE, DIBASIC, ANHYDROUS\MAGNESIUM GLYCEROPHOSPHATE\PHOSPHORIC ACID\SODIUM PHOSPHATE, DIBASIC
     Dosage: UNK
  2. ENOXAPARINE SODIQUE [Concomitant]
     Active Substance: ENOXAPARIN SODIUM
     Dosage: UNK
  3. FUROSEMIDE. [Concomitant]
     Active Substance: FUROSEMIDE
     Dosage: UNK
  4. ESOMEPRAZOLE. [Concomitant]
     Active Substance: ESOMEPRAZOLE MAGNESIUM
     Dosage: UNK
  5. RISPERIDONE. [Suspect]
     Active Substance: RISPERIDONE
     Indication: HALLUCINATION
     Dosage: 1 MILLIGRAM, QD
     Route: 048
     Dates: start: 20200104, end: 20200305
  6. LEDERFOLINE [Concomitant]
     Active Substance: LEUCOVORIN CALCIUM
     Dosage: UNK
  7. NUTRYELT [Concomitant]
     Active Substance: IRON\MINERALS\POTASSIUM IOD\SODIUM FLUORIDE\SODIUM MOLYBDATE\SODIUM SELENITE\ZINC
     Dosage: UNK
  8. TRAMADOL                           /00599202/ [Concomitant]
     Active Substance: TRAMADOL
     Dosage: UNK
  9. DIFFU K [Concomitant]
     Active Substance: POTASSIUM CHLORIDE
  10. ALPRAZOLAM. [Concomitant]
     Active Substance: ALPRAZOLAM
     Dosage: UNK
  11. TRIMETHOPRIME [Suspect]
     Active Substance: TRIMETHOPRIM
     Indication: STAPHYLOCOCCAL INFECTION
     Dosage: 160 MILLIGRAM, QD
     Route: 048
     Dates: start: 20200115, end: 20200301
  12. SULFAMETHOXAZOLE [Suspect]
     Active Substance: SULFAMETHOXAZOLE
     Indication: STAPHYLOCOCCAL INFECTION
     Dosage: 800 MILLIGRAM, QD
     Route: 048
     Dates: start: 20200115, end: 20200301
  13. RIFAMPICINE [Suspect]
     Active Substance: RIFAMPIN
     Indication: STAPHYLOCOCCAL INFECTION
     Dosage: 600 MILLIGRAM, QD
     Route: 048
     Dates: start: 20200115, end: 20200301
  14. METOPROLOL FUMARATE [Concomitant]
     Active Substance: METOPROLOL FUMARATE
     Dosage: UNK

REACTIONS (2)
  - Agranulocytosis [Not Recovered/Not Resolved]
  - Pyrexia [Recovering/Resolving]

NARRATIVE: CASE EVENT DATE: 20200301
